FAERS Safety Report 6726548-2 (Version None)
Quarter: 2010Q2

REPORT INFORMATION
  Report Type: 
  Country: None (occurrence: None)
  Receive Date: 20100514
  Receipt Date: 20100204
  Transmission Date: 20101027
  Serious: Yes (Other)
  Sender: FDA-Public Use
  Company Number: US-BRISTOL-MYERS SQUIBB COMPANY-14963805

PATIENT
  Age: 66 Year
  Sex: Female
  Weight: 57 kg

DRUGS (7)
  1. IXEMPRA KIT [Suspect]
     Dosage: INTERRUPTED ON 14JUL09
     Dates: start: 20090319
  2. TYKERB [Suspect]
     Dates: start: 20090101, end: 20090101
  3. GEMZAR [Suspect]
     Dosage: ALSO TAKEN ON 01DEC09
     Dates: start: 20090910, end: 20090101
  4. XELODA [Suspect]
     Indication: BREAST CANCER
     Route: 048
     Dates: start: 20090101
  5. HERCEPTIN [Suspect]
     Indication: BREAST CANCER
     Dosage: ALSO TAKEN ON 10SEP09 AND 01DEC2009
     Route: 042
     Dates: start: 20050507, end: 20090101
  6. NAVELBINE [Suspect]
     Dates: start: 20050507, end: 20060401
  7. RADIATION THERAPY [Concomitant]
     Indication: METASTASES TO CENTRAL NERVOUS SYSTEM

REACTIONS (2)
  - MALIGNANT NEOPLASM PROGRESSION [None]
  - NEUROPATHY PERIPHERAL [None]
